FAERS Safety Report 24004651 (Version 1)
Quarter: 2024Q2

REPORT INFORMATION
  Report Type: Spontaneous
  Country: US (occurrence: US)
  Receive Date: 20240624
  Receipt Date: 20240624
  Transmission Date: 20240716
  Serious: Yes (Other)
  Sender: FDA-Public Use
  Company Number: US-STERISCIENCE B.V.-2024-ST-000850

PATIENT
  Age: 74 Year
  Sex: Female

DRUGS (7)
  1. MYCOPHENOLATE MOFETIL [Suspect]
     Active Substance: MYCOPHENOLATE MOFETIL
     Indication: Immunosuppressant drug therapy
     Dosage: 1000 MILLIGRAM, QD
     Route: 065
  2. MYCOPHENOLATE MOFETIL [Suspect]
     Active Substance: MYCOPHENOLATE MOFETIL
     Indication: Chorea
  3. Immunoglobulin [Concomitant]
     Indication: Evidence based treatment
     Dosage: 0.4 GRAM PER KILOGRAM, 5X
     Route: 042
  4. Immunoglobulin [Concomitant]
     Dosage: UNK, IDENTICAL DOSE
     Route: 042
  5. Immunoglobulin [Concomitant]
     Dosage: 2 GRAM PER KILOGRAM, MONTHLY,  MAINTENANCE TREATMENT
     Route: 042
  6. METHYLPREDNISOLONE [Concomitant]
     Active Substance: METHYLPREDNISOLONE
     Indication: Immunosuppressant drug therapy
     Dosage: 1.3 MG/KG WEEKLY
     Route: 065
  7. METHYLPREDNISOLONE [Concomitant]
     Active Substance: METHYLPREDNISOLONE
     Indication: Chorea
     Dosage: 1.3 MG/KG WEEKLY FOR 6 WEEKS
     Route: 065

REACTIONS (3)
  - Drug ineffective for unapproved indication [Unknown]
  - Condition aggravated [Unknown]
  - Cognitive disorder [Unknown]
